FAERS Safety Report 6212487-2 (Version None)
Quarter: 2009Q2

REPORT INFORMATION
  Report Type: 
  Country: None (occurrence: None)
  Receive Date: 20090603
  Receipt Date: 20090522
  Transmission Date: 20091009
  Serious: Yes (Hospitalization, Other)
  Sender: FDA-Public Use
  Company Number: FR-JNJFOC-20030702962

PATIENT
  Age: 28 Year
  Sex: Female

DRUGS (11)
  1. INFLIXIMAB [Suspect]
     Route: 042
  2. INFLIXIMAB [Suspect]
     Indication: JUVENILE ARTHRITIS
     Route: 042
  3. NAPROXEN [Suspect]
     Indication: DRUG USE FOR UNKNOWN INDICATION
  4. SULFAMETHOXAZOLE AND TRIMETHOPRIM [Suspect]
     Indication: ANTIFUNGAL PROPHYLAXIS
  5. PREDNISONE [Concomitant]
  6. TRIMETHOPRIM [Concomitant]
  7. DEDROGYL [Concomitant]
  8. CALCIUM [Concomitant]
  9. EFFERALGAN CODEINE [Concomitant]
  10. CYCLOPHOSPHAMIDE [Concomitant]
  11. AZATHIOPRINE [Concomitant]

REACTIONS (9)
  - COMA [None]
  - DERMATITIS EXFOLIATIVE [None]
  - ENCEPHALOPATHY [None]
  - HEPATIC FAILURE [None]
  - HEPATITIS FULMINANT [None]
  - HEPATOTOXICITY [None]
  - HYPOTENSION [None]
  - POLYARTHRITIS [None]
  - PYREXIA [None]
